FAERS Safety Report 5119218-8 (Version None)
Quarter: 2006Q4

REPORT INFORMATION
  Report Type: 
  Country: None (occurrence: None)
  Receive Date: 20061002
  Receipt Date: 20061002
  Transmission Date: 20070319
  Serious: No
  Sender: FDA-Public Use
  Company Number: None

PATIENT

DRUGS (2)
  1. ADVAIR DISKUS 250/50 [Suspect]
     Dosage: POWDER
  2. ADVICOR [Suspect]
     Dosage: TABLET, EXTENDED RELEASE

REACTIONS (2)
  - DRUG DISPENSING ERROR [None]
  - MEDICATION ERROR [None]
